FAERS Safety Report 10393620 (Version 1)
Quarter: 2014Q3

REPORT INFORMATION
  Report Type: Other
  Country: FR (occurrence: FR)
  Receive Date: 20140819
  Receipt Date: 20140819
  Transmission Date: 20150326
  Serious: Yes (Other)
  Sender: FDA-Public Use
  Company Number: FR-MYLANLABS-2014M1000637

PATIENT

DRUGS (1)
  1. VALPROATE DE SODIUM MERCK LP 500MG [Suspect]
     Active Substance: VALPROATE SODIUM
     Dosage: 500 MG, BID
     Route: 048
     Dates: start: 20080914, end: 20080926

REACTIONS (2)
  - Epilepsy [Recovered/Resolved]
  - Therapeutic response changed [Recovered/Resolved]

NARRATIVE: CASE EVENT DATE: 20080926
